FAERS Safety Report 21911154 (Version 1)
Quarter: 2023Q1

REPORT INFORMATION
  Report Type: Spontaneous
  Country: US (occurrence: None)
  Receive Date: 20230125
  Receipt Date: 20230125
  Transmission Date: 20230418
  Serious: Yes (Other)
  Sender: FDA-Public Use
  Company Number: None

PATIENT
  Age: 64 Year
  Sex: Female
  Weight: 83.7 kg

DRUGS (4)
  1. IMBRUVICA [Suspect]
     Active Substance: IBRUTINIB
     Indication: Extranodal marginal zone B-cell lymphoma (MALT type)
     Dosage: FREQUENCY : DAILY;?
     Route: 048
     Dates: start: 20190906, end: 20230120
  2. NADOLOL [Concomitant]
     Active Substance: NADOLOL
     Dates: start: 20140312
  3. NORVASC [Concomitant]
     Active Substance: AMLODIPINE BESYLATE
     Dates: start: 20140312
  4. VITAMIN D3 [Concomitant]
     Active Substance: CHOLECALCIFEROL
     Dates: start: 20171206

REACTIONS (1)
  - Second primary malignancy [None]

NARRATIVE: CASE EVENT DATE: 20230117
